FAERS Safety Report 9062394 (Version 1)
Quarter: 2013Q1

REPORT INFORMATION
  Report Type: Spontaneous
  Country: FR (occurrence: FR)
  Receive Date: 20130213
  Receipt Date: 20130213
  Transmission Date: 20140127
  Serious: Yes (Hospitalization)
  Sender: FDA-Public Use
  Company Number: FR-GLAXOSMITHKLINE-B0865816A

PATIENT
  Age: 40 None
  Sex: Female

DRUGS (6)
  1. AUGMENTIN [Suspect]
     Indication: BRONCHITIS
     Route: 048
     Dates: start: 20111220, end: 20111222
  2. ERYTHROMYCINE [Suspect]
     Indication: BRONCHITIS
     Route: 048
     Dates: start: 20111217, end: 20111220
  3. VENTOLINE [Suspect]
     Indication: BRONCHITIS
     Route: 055
     Dates: start: 20111220
  4. LEVOTHYROX [Concomitant]
     Indication: HYPOTHYROIDISM
     Route: 048
  5. SOLUPRED [Concomitant]
     Indication: ASTHMA
     Route: 048
     Dates: start: 20111220, end: 20111229
  6. ATARAX [Concomitant]
     Indication: HYPERSENSITIVITY
     Route: 065
     Dates: start: 20111220, end: 20111222

REACTIONS (4)
  - Erythema [Recovered/Resolved]
  - Dyspnoea [Unknown]
  - Chest discomfort [Unknown]
  - Exposure during pregnancy [Unknown]
